FAERS Safety Report 24751494 (Version 4)
Quarter: 2025Q3

REPORT INFORMATION
  Report Type: Report from Study
  Country: US (occurrence: US)
  Receive Date: 20241219
  Receipt Date: 20250809
  Transmission Date: 20251021
  Serious: Yes (Other)
  Sender: ALEXION PHARMACEUTICALS
  Company Number: US-AstraZeneca-CH-00769172A

PATIENT
  Age: 76 Year
  Sex: Male

DRUGS (1)
  1. SOLIRIS [Suspect]
     Active Substance: ECULIZUMAB
     Indication: Myasthenia gravis
     Route: 065

REACTIONS (9)
  - Gastric cancer [Not Recovered/Not Resolved]
  - Spinal fracture [Unknown]
  - Fall [Unknown]
  - Pain [Unknown]
  - Eating disorder [Not Recovered/Not Resolved]
  - Mobility decreased [Unknown]
  - Asthenia [Not Recovered/Not Resolved]
  - Wheelchair user [Unknown]
  - Weight decreased [Unknown]
